FAERS Safety Report 6258272-7 (Version None)
Quarter: 2009Q3

REPORT INFORMATION
  Report Type: 
  Country: None (occurrence: None)
  Receive Date: 20090702
  Receipt Date: 20090702
  Transmission Date: 20100115
  Serious: Yes (Life-Threatening, Hospitalization)
  Sender: FDA-Public Use
  Company Number: None

PATIENT
  Age: 41 Year
  Sex: Male
  Weight: 91.6266 kg

DRUGS (2)
  1. LEVAQUIN [Suspect]
     Indication: ANTIBIOTIC PROPHYLAXIS
     Dosage: 1 TABLET DAILY PO
     Route: 048
     Dates: start: 20090626, end: 20090629
  2. LEVAQUIN [Suspect]
     Indication: KNEE OPERATION
     Dosage: 1 TABLET DAILY PO
     Route: 048
     Dates: start: 20090626, end: 20090629

REACTIONS (4)
  - ANAPHYLACTIC REACTION [None]
  - CONFUSIONAL STATE [None]
  - DRUG HYPERSENSITIVITY [None]
  - LOSS OF CONSCIOUSNESS [None]
